FAERS Safety Report 14916687 (Version 1)
Quarter: 2018Q2

REPORT INFORMATION
  Report Type: Spontaneous
  Country: DE (occurrence: DE)
  Receive Date: 20180519
  Receipt Date: 20180519
  Transmission Date: 20180711
  Serious: Yes (Hospitalization)
  Sender: FDA-Public Use
  Company Number: DE-ESPERO PHARMACEUTICALS-ESP201805-000021

PATIENT
  Age: 79 Year
  Sex: Female

DRUGS (6)
  1. FENTANYL. [Suspect]
     Active Substance: FENTANYL
  2. METOPROLOL. [Suspect]
     Active Substance: METOPROLOL
     Dosage: 100 MG (0-0-1-0)
  3. SPIRO COMP-RATIOPHARM [Suspect]
     Active Substance: FUROSEMIDE\SPIRONOLACTONE
  4. PREDNISOLONE. [Concomitant]
     Active Substance: PREDNISOLONE
  5. SPIRO COMP-RATIOPHARM [Suspect]
     Active Substance: FUROSEMIDE\SPIRONOLACTONE
     Dosage: 15/20 MG
  6. NITROGLYCERIN. [Suspect]
     Active Substance: NITROGLYCERIN
     Dosage: 2 PUFFS

REACTIONS (7)
  - Pyrexia [None]
  - Syncope [Unknown]
  - Failure to suspend medication [None]
  - Chest pain [None]
  - Drug administration error [None]
  - General physical health deterioration [Unknown]
  - Hypotension [None]
